FAERS Safety Report 8701528 (Version 3)
Quarter: 2013Q2

REPORT INFORMATION
  Report Type: Report from Study
  Country: US (occurrence: US)
  Receive Date: 20120803
  Receipt Date: 20130529
  Transmission Date: 20140414
  Serious: Yes (Death, Hospitalization)
  Sender: FDA-Public Use
  Company Number: US-BRISTOL-MYERS SQUIBB COMPANY-14299432

PATIENT
  Age: 45 Year
  Sex: Female

DRUGS (4)
  1. IPILIMUMAB [Suspect]
     Indication: MALIGNANT MELANOMA
     Dosage: 1 DOSAGE FORM : 10MG/KG,475MG, ALSO TOOK 8850 MG
     Route: 042
     Dates: start: 20080506, end: 20120625
  2. XANAX [Concomitant]
     Dates: start: 200805
  3. LEVOTHYROXINE [Concomitant]
     Dates: start: 20101228
  4. PAROXETINE [Concomitant]
     Dates: start: 20120515

REACTIONS (7)
  - Death [Fatal]
  - Cardiac arrest [Not Recovered/Not Resolved]
  - Diarrhoea [Recovered/Resolved]
  - Dehydration [Not Recovered/Not Resolved]
  - Nausea [Unknown]
  - Vomiting [Unknown]
  - Decreased appetite [Not Recovered/Not Resolved]
